FAERS Safety Report 4869544-2 (Version None)
Quarter: 2005Q4

REPORT INFORMATION
  Report Type: 
  Country: None (occurrence: None)
  Receive Date: 20051227
  Receipt Date: 20051212
  Transmission Date: 20060501
  Serious: Yes (Other)
  Sender: FDA-Public Use
  Company Number: DE-JNJFOC-20051202984

PATIENT
  Age: 13 Year
  Sex: Female
  Weight: 37.5 kg

DRUGS (1)
  1. CONCERTA [Suspect]
     Dosage: 18 MG, IN 1 DAY, ORAL
     Route: 048
     Dates: start: 20050901

REACTIONS (2)
  - ANOREXIA [None]
  - WEIGHT DECREASED [None]
